FAERS Safety Report 5381006-5 (Version None)
Quarter: 2007Q3

REPORT INFORMATION
  Report Type: 
  Country: None (occurrence: None)
  Receive Date: 20070702
  Receipt Date: 20070108
  Transmission Date: 20080115
  Serious: Yes (Hospitalization)
  Sender: FDA-Public Use
  Company Number: PROG00207000071

PATIENT
  Age: 60 Year
  Sex: Female

DRUGS (2)
  1. PROGESTERONE [Suspect]
     Indication: ILL-DEFINED DISORDER
     Dates: start: 19930101, end: 20060101
  2. ESTRADIOL [Suspect]
     Indication: ILL-DEFINED DISORDER
     Dates: start: 19930101, end: 20060101

REACTIONS (1)
  - RETINAL VEIN THROMBOSIS [None]
